FAERS Safety Report 12622408 (Version 1)
Quarter: 2016Q3

REPORT INFORMATION
  Report Type: Spontaneous
  Country: US (occurrence: US)
  Receive Date: 20160804
  Receipt Date: 20160804
  Transmission Date: 20161109
  Serious: Yes (Hospitalization)
  Sender: FDA-Public Use
  Company Number: US-ASTRAZENECA-2016SE82583

PATIENT
  Age: 31581 Day
  Sex: Female
  Weight: 98.9 kg

DRUGS (2)
  1. BYDUREON [Suspect]
     Active Substance: EXENATIDE
     Indication: TYPE 2 DIABETES MELLITUS
     Route: 058
     Dates: start: 2016
  2. MANY OTHER MEDICATION [Concomitant]

REACTIONS (3)
  - Fall [Unknown]
  - Head injury [Unknown]
  - Rib fracture [Unknown]

NARRATIVE: CASE EVENT DATE: 20160724
